FAERS Safety Report 9831098 (Version 6)
Quarter: 2014Q4

REPORT INFORMATION
  Report Type: Report from Study
  Country: GB (occurrence: GB)
  Receive Date: 20140120
  Receipt Date: 20141126
  Transmission Date: 20150529
  Serious: Yes (Death, Hospitalization, Other)
  Sender: FDA-Public Use
  Company Number: GB-ROCHE-1335272

PATIENT
  Age: 93 Year
  Sex: Female

DRUGS (7)
  1. RABEPRAZOLE [Concomitant]
     Active Substance: RABEPRAZOLE
     Route: 065
     Dates: start: 1995
  2. ATENOLOL. [Concomitant]
     Active Substance: ATENOLOL
     Route: 065
     Dates: start: 1998
  3. ENALAPRIL [Concomitant]
     Active Substance: ENALAPRIL
     Route: 065
     Dates: start: 2009
  4. ADALAT [Concomitant]
     Active Substance: NIFEDIPINE
     Route: 065
     Dates: start: 1992
  5. THYROXINE [Concomitant]
     Active Substance: LEVOTHYROXINE
     Route: 065
     Dates: start: 1997
  6. RANIBIZUMAB [Suspect]
     Active Substance: RANIBIZUMAB
     Indication: AGE-RELATED MACULAR DEGENERATION
     Route: 050
     Dates: start: 20110625, end: 20110625
  7. RANIBIZUMAB [Suspect]
     Active Substance: RANIBIZUMAB
     Route: 050
     Dates: start: 20130208, end: 20130208

REACTIONS (17)
  - Confusional state [Unknown]
  - Back pain [Unknown]
  - Loss of consciousness [Unknown]
  - Fall [Unknown]
  - Oedema peripheral [Recovering/Resolving]
  - Headache [Unknown]
  - Anaemia postoperative [Recovering/Resolving]
  - Joint dislocation [Recovered/Resolved]
  - Lower respiratory tract infection [Unknown]
  - Periprosthetic fracture [Recovering/Resolving]
  - Malaise [Unknown]
  - Death [Fatal]
  - Arthralgia [Unknown]
  - Cerebrovascular accident [Fatal]
  - Deep vein thrombosis [Recovering/Resolving]
  - Pubis fracture [Recovering/Resolving]
  - Urinary tract infection [Recovered/Resolved]

NARRATIVE: CASE EVENT DATE: 20130317
